FAERS Safety Report 5923537-2 (Version None)
Quarter: 2008Q4

REPORT INFORMATION
  Report Type: 
  Country: None (occurrence: None)
  Receive Date: 20081020
  Receipt Date: 20081010
  Transmission Date: 20090506
  Serious: Yes (Life-Threatening)
  Sender: FDA-Public Use
  Company Number: AT-AMGEN-UK312595

PATIENT
  Sex: Female

DRUGS (4)
  1. PANITUMUMAB [Suspect]
     Indication: COLORECTAL CANCER
     Route: 042
     Dates: start: 20080507
  2. FLUOROURACIL [Suspect]
     Indication: CHEMOTHERAPY
     Route: 065
  3. IRINOTECAN HYDROCHLORIDE [Concomitant]
     Route: 065
  4. LEUCOVORIN CALCIUM [Concomitant]
     Route: 065

REACTIONS (2)
  - BRONCHOSPASM [None]
  - LARYNGOSPASM [None]
